FAERS Safety Report 22660540 (Version 1)
Quarter: 2023Q2

REPORT INFORMATION
  Report Type: Spontaneous
  Country: US (occurrence: US)
  Receive Date: 20230630
  Receipt Date: 20230630
  Transmission Date: 20230721
  Serious: Yes (Other)
  Sender: FDA-Public Use
  Company Number: US-NOVOPROD-1082509

PATIENT
  Age: 71 Year
  Sex: Female

DRUGS (1)
  1. LEVEMIR [Suspect]
     Active Substance: INSULIN DETEMIR
     Indication: Product used for unknown indication
     Dosage: UNK
     Route: 058
     Dates: start: 20230520

REACTIONS (4)
  - Parkinson^s disease [Unknown]
  - Knee arthroplasty [Unknown]
  - Skin haemorrhage [Not Recovered/Not Resolved]
  - Malaise [Not Recovered/Not Resolved]
